FAERS Safety Report 8576793-9 (Version None)
Quarter: 2012Q3

REPORT INFORMATION
  Report Type: 
  Country: None (occurrence: None)
  Receive Date: 20120807
  Receipt Date: 20120803
  Transmission Date: 20120928
  Serious: Yes (Hospitalization)
  Sender: FDA-Public Use
  Company Number: AR-AMGEN-US353302

PATIENT
  Age: 68 Year
  Sex: Female

DRUGS (7)
  1. PANTOPRAZOLE [Concomitant]
     Dosage: 20 MG, QD
     Route: 048
     Dates: start: 20080101
  2. CINACALCET HYDROCHLORIDE [Suspect]
     Indication: HYPERPARATHYROIDISM SECONDARY
     Dosage: UNK BLINDED, QD
     Route: 048
     Dates: start: 20070228, end: 20090622
  3. LEVOTHYROXINE SODIUM [Concomitant]
     Dosage: 125 MUG, QD
     Route: 048
     Dates: start: 20060701
  4. TELMISARTAN [Concomitant]
     Dosage: 80 MG, QD
     Route: 048
     Dates: start: 20060701
  5. CLONAZEPAM [Concomitant]
     Dosage: .5 MG, QD
     Route: 048
     Dates: start: 20070101
  6. ROSUVASTATIN [Concomitant]
     Dosage: 10 MG, QD
     Route: 048
     Dates: start: 20080101
  7. CARVEDILOL [Concomitant]
     Dosage: 12.5 MG, QD
     Route: 048
     Dates: start: 20060701

REACTIONS (3)
  - HYPERTENSION [None]
  - CEREBRAL ISCHAEMIA [None]
  - CEREBELLAR ISCHAEMIA [None]
